FAERS Safety Report 23763047 (Version 2)
Quarter: 2024Q2

REPORT INFORMATION
  Report Type: Spontaneous
  Country: US (occurrence: US)
  Receive Date: 20240419
  Receipt Date: 20240614
  Transmission Date: 20240715
  Serious: No
  Sender: FDA-Public Use
  Company Number: US-SA-SAC20240416001325

PATIENT
  Age: 71 Year
  Sex: Female

DRUGS (1)
  1. DUPIXENT [Suspect]
     Active Substance: DUPILUMAB
     Indication: Dermatitis atopic
     Dosage: 300 MG, QOW
     Route: 058
     Dates: start: 20230920

REACTIONS (15)
  - Abdominal pain upper [Unknown]
  - Diarrhoea [Unknown]
  - Skin ulcer [Unknown]
  - Scratch [Unknown]
  - Pruritus genital [Unknown]
  - Pruritus [Unknown]
  - Acne [Unknown]
  - Anxiety [Unknown]
  - Mammogram abnormal [Unknown]
  - Cardiac disorder [Unknown]
  - Crying [Unknown]
  - Emotional disorder [Unknown]
  - Sleep disorder due to a general medical condition [Unknown]
  - Rash [Unknown]
  - Product dose omission in error [Unknown]

NARRATIVE: CASE EVENT DATE: 20240101
